FAERS Safety Report 18557999 (Version 8)
Quarter: 2022Q1

REPORT INFORMATION
  Report Type: Spontaneous
  Country: US (occurrence: US)
  Receive Date: 20201130
  Receipt Date: 20220330
  Transmission Date: 20220423
  Serious: Yes (Hospitalization, Other)
  Sender: FDA-Public Use
  Company Number: US-AMRYT PHARMACEUTICALS DAC-AEGR005028

PATIENT
  Age: 27 Year
  Sex: Female
  Weight: 41.315 kg

DRUGS (28)
  1. MYALEPT [Suspect]
     Active Substance: METRELEPTIN
     Indication: Lipodystrophy acquired
     Dosage: UNK
     Dates: start: 200111
  2. MYALEPT [Suspect]
     Active Substance: METRELEPTIN
     Dosage: 6 MILLIGRAM (1.2 ML), QD
     Route: 058
  3. MYALEPT [Suspect]
     Active Substance: METRELEPTIN
     Dosage: 5.5 MILLIGRAM, QD
     Route: 058
  4. MYALEPT [Suspect]
     Active Substance: METRELEPTIN
     Dosage: 5 MILLIGRAM, QD
     Route: 058
  5. MYALEPT [Suspect]
     Active Substance: METRELEPTIN
     Dosage: 6.5 MILLIGRAM, QD
     Route: 058
     Dates: start: 20211207
  6. CELLCEPT [Concomitant]
     Active Substance: MYCOPHENOLATE MOFETIL
     Indication: Product used for unknown indication
     Dosage: UNK
  7. HUMULIN R [Concomitant]
     Active Substance: INSULIN HUMAN
     Indication: Diabetes mellitus
     Dosage: 35 -120 UNITS, BID
  8. HUMULIN R [Concomitant]
     Active Substance: INSULIN HUMAN
     Dosage: 100-250 UNITS, QID
  9. PREDNISONE ACETATE [Concomitant]
     Active Substance: PREDNISONE ACETATE
     Indication: Autoimmune hepatitis
     Dosage: 10 MILLIGRAM
  10. PREDNISONE ACETATE [Concomitant]
     Active Substance: PREDNISONE ACETATE
     Dosage: 5 MILLIGRAM, BID
     Route: 048
  11. LEVOTHYROXINE SODIUM [Concomitant]
     Active Substance: LEVOTHYROXINE SODIUM
     Indication: Hypothyroidism
     Dosage: 250 MICROGRAM, QD
     Route: 048
  12. BACTERIOSTATIC WATER [Concomitant]
     Active Substance: WATER
     Indication: Product used for unknown indication
  13. BUMETANIDE [Concomitant]
     Active Substance: BUMETANIDE
     Indication: Product used for unknown indication
     Dosage: UNK
  14. FUROSEMIDE [Concomitant]
     Active Substance: FUROSEMIDE
     Indication: Product used for unknown indication
     Dosage: UNK
  15. LEVEMIR [Concomitant]
     Active Substance: INSULIN DETEMIR
     Indication: Diabetes mellitus
     Dosage: 40 UNITS, QD HS
  16. LEVEMIR [Concomitant]
     Active Substance: INSULIN DETEMIR
     Dosage: 80 UNITS, QD HS
     Dates: start: 202112
  17. K-DUR [Concomitant]
     Active Substance: POTASSIUM CHLORIDE
     Indication: Product used for unknown indication
     Dosage: UNK
  18. POTASSIUM PHOSPHATE, MONOBASIC [Concomitant]
     Active Substance: POTASSIUM PHOSPHATE, MONOBASIC
     Indication: Product used for unknown indication
     Dosage: UNK
  19. VITAMIN D NOS [Concomitant]
     Active Substance: VITAMIN D NOS
     Indication: Product used for unknown indication
     Dosage: UNK
  20. ZANTAC [Concomitant]
     Active Substance: RANITIDINE HYDROCHLORIDE
     Indication: Product used for unknown indication
     Dosage: UNK
  21. RIBAVIRIN [Concomitant]
     Active Substance: RIBAVIRIN
     Indication: Product used for unknown indication
     Dosage: UNK
  22. RIFAXIMIN [Concomitant]
     Active Substance: RIFAXIMIN
     Indication: Product used for unknown indication
     Dosage: UNK
  23. SPIRONOLACTONE [Concomitant]
     Active Substance: SPIRONOLACTONE
     Indication: Product used for unknown indication
     Dosage: UNK
  24. JUNEL FE 1/20 [Concomitant]
     Active Substance: ETHINYL ESTRADIOL\NORETHINDRONE ACETATE
     Indication: Product used for unknown indication
     Dosage: UNK
  25. DEMADEX [Concomitant]
     Active Substance: TORSEMIDE
     Indication: Oedema
     Dosage: 40 MILLIGRAM, QD
     Route: 048
  26. RETACRIT [Concomitant]
     Active Substance: EPOETIN ALFA-EPBX
     Indication: Anaemia
     Dosage: UNK
  27. ALLOPURINOL [Concomitant]
     Active Substance: ALLOPURINOL
     Indication: Product used for unknown indication
     Dosage: 100 MILLIGRAM, QD
     Route: 048
  28. IMMUNE GLOBULIN NOS [Concomitant]
     Active Substance: IMMUNE GLOBULIN NOS
     Indication: Immune system disorder
     Dosage: UNK

REACTIONS (19)
  - Blood bicarbonate decreased [Unknown]
  - Pneumonia [Unknown]
  - Intestinal obstruction [Unknown]
  - Spleen disorder [Unknown]
  - Respiratory disorder [Unknown]
  - Diabetic ketoacidosis [Unknown]
  - Hypokalaemia [Unknown]
  - Acidosis [Unknown]
  - Mental status changes [Unknown]
  - Ammonia increased [Unknown]
  - Metabolic acidosis [Unknown]
  - Blood potassium decreased [Unknown]
  - Diarrhoea [Unknown]
  - Hypoglycaemia [Unknown]
  - Anaemia [Unknown]
  - Diabetes mellitus [Unknown]
  - Weight increased [Unknown]
  - Insulin resistance [Unknown]
  - Drug ineffective [Unknown]

NARRATIVE: CASE EVENT DATE: 20200412
